FAERS Safety Report 7176857-0 (Version None)
Quarter: 2010Q4

REPORT INFORMATION
  Report Type: 
  Country: None (occurrence: None)
  Receive Date: 20101220
  Receipt Date: 20101213
  Transmission Date: 20110411
  Serious: Yes (Hospitalization, Other)
  Sender: FDA-Public Use
  Company Number: GB-JNJFOC-20101007759

PATIENT
  Sex: Male

DRUGS (2)
  1. RISPERDAL CONSTA [Suspect]
     Indication: ILL-DEFINED DISORDER
     Route: 030
  2. RISPERDAL CONSTA [Suspect]
     Route: 030

REACTIONS (4)
  - ALANINE AMINOTRANSFERASE INCREASED [None]
  - HOSPITALISATION [None]
  - ORTHOSTATIC HYPOTENSION [None]
  - SYNCOPE [None]
